FAERS Safety Report 7796961-3 (Version None)
Quarter: 2011Q4

REPORT INFORMATION
  Report Type: 
  Country: None (occurrence: None)
  Receive Date: 20111005
  Receipt Date: 20110929
  Transmission Date: 20120403
  Serious: Yes (Death)
  Sender: FDA-Public Use
  Company Number: US-SANOFI-AVENTIS-2011SA063863

PATIENT
  Age: 71 Year
  Sex: Male

DRUGS (9)
  1. JEVTANA KIT [Suspect]
     Route: 041
     Dates: start: 20110102, end: 20110102
  2. NEUPOGEN [Concomitant]
     Dates: start: 20101121, end: 20101121
  3. JEVTANA KIT [Suspect]
     Route: 041
     Dates: start: 20101121, end: 20101121
  4. JEVTANA KIT [Suspect]
     Route: 041
     Dates: start: 20101212, end: 20101212
  5. NEUPOGEN [Concomitant]
     Dates: start: 20101031, end: 20101031
  6. JEVTANA KIT [Suspect]
     Indication: PROSTATE CANCER
     Route: 041
     Dates: start: 20101031, end: 20101031
  7. HORMONES AND RELATED AGENTS [Concomitant]
     Indication: PROSTATE CANCER
     Dates: start: 20100101
  8. NEUPOGEN [Concomitant]
     Dates: start: 20110102, end: 20110102
  9. NEUPOGEN [Concomitant]
     Dates: start: 20101212, end: 20101212

REACTIONS (3)
  - WEIGHT DECREASED [None]
  - DIARRHOEA [None]
  - DEATH [None]
